FAERS Safety Report 6720262-5 (Version None)
Quarter: 2010Q2

REPORT INFORMATION
  Report Type: 
  Country: None (occurrence: None)
  Receive Date: 20100511
  Receipt Date: 20100407
  Transmission Date: 20101027
  Serious: No
  Sender: FDA-Public Use
  Company Number: US-JNJFOC-20100402668

PATIENT
  Sex: Female

DRUGS (11)
  1. INVEGA [Suspect]
     Indication: SCHIZOPHRENIA
     Route: 048
  2. LAMOTRIGINE [Concomitant]
     Indication: DRUG THERAPY
  3. BENZTROPINE MESYLATE [Concomitant]
     Indication: PROPHYLAXIS
  4. SEROQUEL [Concomitant]
     Indication: DRUG USE FOR UNKNOWN INDICATION
  5. STOOL SOFTENER [Concomitant]
     Indication: DRUG USE FOR UNKNOWN INDICATION
  6. IBUPROFEN [Concomitant]
     Indication: DRUG USE FOR UNKNOWN INDICATION
  7. ATENOLOL [Concomitant]
     Indication: HEART RATE INCREASED
  8. ATENOLOL [Concomitant]
     Indication: HYPERTENSION
  9. CALCIUM WITH VITAMIN D [Concomitant]
     Indication: MEDICAL DIET
  10. SYNTHROID [Concomitant]
     Indication: THYROID DISORDER
  11. OXYBUTYN [Concomitant]
     Indication: DRUG USE FOR UNKNOWN INDICATION

REACTIONS (2)
  - CYANOSIS [None]
  - WRONG TECHNIQUE IN DRUG USAGE PROCESS [None]
